FAERS Safety Report 23164289 (Version 1)
Quarter: 2023Q4

REPORT INFORMATION
  Report Type: Spontaneous
  Country: US (occurrence: None)
  Receive Date: 20231108
  Receipt Date: 20231108
  Transmission Date: 20240110
  Serious: Yes (Hospitalization, Disabling, Other)
  Sender: FDA-Public Use
  Company Number: None

PATIENT
  Age: 33 Year
  Sex: Male
  Weight: 103.5 kg

DRUGS (11)
  1. GEODON [Suspect]
     Active Substance: ZIPRASIDONE HYDROCHLORIDE\ZIPRASIDONE MESYLATE
     Indication: Schizoaffective disorder bipolar type
     Dosage: FREQUENCY : TWICE A DAY;?
     Route: 048
     Dates: start: 20060202, end: 20181109
  2. ZYPREXA [Suspect]
     Active Substance: OLANZAPINE
     Indication: Schizoaffective disorder bipolar type
  3. RISPERIDONE [Suspect]
     Active Substance: RISPERIDONE
  4. INVEGA SUSTENNA [Suspect]
     Active Substance: PALIPERIDONE PALMITATE
  5. METOPROLOL TARTRATE [Suspect]
     Active Substance: METOPROLOL TARTRATE
  6. Kane [Concomitant]
  7. DEVICE [Concomitant]
     Active Substance: DEVICE
  8. abuiniliar inhaler [Concomitant]
  9. TYLENOL [Concomitant]
     Active Substance: ACETAMINOPHEN
  10. fish oil vitamins [Concomitant]
  11. VITAMIN C [Concomitant]
     Active Substance: ASCORBIC ACID

REACTIONS (8)
  - Erectile dysfunction [None]
  - Breast disorder male [None]
  - Suicide attempt [None]
  - Myocardial infarction [None]
  - Constipation [None]
  - Fatigue [None]
  - Penis disorder [None]
  - Pulmonary embolism [None]

NARRATIVE: CASE EVENT DATE: 20200102
